FAERS Safety Report 13344417 (Version 2)
Quarter: 2017Q1

REPORT INFORMATION
  Report Type: Report from Study
  Country: None (occurrence: NZ)
  Receive Date: 20170317
  Receipt Date: 20170320
  Transmission Date: 20170428
  Serious: Yes (Other)
  Sender: FDA-Public Use
  Company Number: NZ-ABBVIE-17P-118-1903871-00

PATIENT
  Sex: Male

DRUGS (2)
  1. HUMIRA [Suspect]
     Active Substance: ADALIMUMAB
     Indication: CROHN^S DISEASE
     Route: 030
     Dates: start: 201612
  2. OXYNORM [Concomitant]
     Active Substance: OXYCODONE HYDROCHLORIDE
     Indication: ANALGESIC THERAPY

REACTIONS (10)
  - Oropharyngeal pain [Unknown]
  - Nervousness [Unknown]
  - Anxiety [Unknown]
  - Depressed mood [Unknown]
  - Insomnia [Unknown]
  - Suicidal ideation [Unknown]
  - Dry throat [Unknown]
  - Lethargy [Unknown]
  - Headache [Unknown]
  - Decreased interest [Unknown]
